FAERS Safety Report 5148791-9 (Version None)
Quarter: 2006Q4

REPORT INFORMATION
  Report Type: 
  Country: None (occurrence: None)
  Receive Date: 20061113
  Receipt Date: 20061101
  Transmission Date: 20070319
  Serious: Yes (Other)
  Sender: FDA-Public Use
  Company Number: PHEH2006US13606

PATIENT
  Age: 64 Year
  Sex: Female

DRUGS (1)
  1. LAMISIL [Suspect]
     Indication: NAIL TINEA
     Dosage: 250 MG, QD
     Route: 048
     Dates: start: 20061017, end: 20061025

REACTIONS (3)
  - PRURITUS [None]
  - RASH GENERALISED [None]
  - VULVOVAGINAL MYCOTIC INFECTION [None]
